FAERS Safety Report 8173959 (Version 3)
Quarter: 2013Q1

REPORT INFORMATION
  Report Type: Spontaneous
  Country: US (occurrence: US)
  Receive Date: 20111010
  Receipt Date: 20130121
  Transmission Date: 20140127
  Serious: Yes (Life-Threatening, Hospitalization)
  Sender: FDA-Public Use
  Company Number: US-BAYER-2011-096146

PATIENT
  Age: 19 Year
  Sex: Female

DRUGS (11)
  1. YAZ [Suspect]
  2. YASMIN [Suspect]
  3. OCELLA [Suspect]
  4. NEXIUM [Concomitant]
     Indication: GASTROOESOPHAGEAL REFLUX DISEASE
     Dosage: UNK
     Dates: start: 20090720
  5. TRAZODONE [Concomitant]
  6. DEPAKOTE [Concomitant]
     Dosage: 250 MG, BID
  7. TOPROL XL [Concomitant]
     Dosage: 25 MG, DAILY
  8. XANAX [Concomitant]
     Dosage: 0.5 MG, UNK
     Route: 048
  9. LEXAPRO [Concomitant]
     Dosage: 10 MG, DAILY
     Route: 048
  10. ATIVAN [Concomitant]
     Dosage: 0.25 MG, DAILY
     Route: 048
  11. TRAMADOL [Concomitant]

REACTIONS (7)
  - Pulmonary embolism [None]
  - Deep vein thrombosis [None]
  - Injury [None]
  - Pain [None]
  - Anxiety [None]
  - Anhedonia [None]
  - General physical health deterioration [None]
